FAERS Safety Report 9712042 (Version 1)
Quarter: 2013Q4

REPORT INFORMATION
  Report Type: Spontaneous
  Country: US (occurrence: US)
  Receive Date: 20131126
  Receipt Date: 20131126
  Transmission Date: 20140711
  Serious: No
  Sender: FDA-Public Use
  Company Number: US-BRISTOL-MYERS SQUIBB COMPANY-19139567

PATIENT
  Age: 75 Year
  Sex: Female
  Weight: 67.12 kg

DRUGS (3)
  1. BYDUREON [Suspect]
     Indication: TYPE 2 DIABETES MELLITUS
     Route: 058
  2. NOVOLOG [Concomitant]
     Dosage: FORMULATION-NOVOLOG 70/30
  3. LANTUS [Concomitant]

REACTIONS (1)
  - Injection site mass [Unknown]
